FAERS Safety Report 12559854 (Version 3)
Quarter: 2016Q3

REPORT INFORMATION
  Report Type: Spontaneous
  Country: GB (occurrence: GB)
  Receive Date: 20160715
  Receipt Date: 20160804
  Transmission Date: 20161109
  Serious: Yes (Other)
  Sender: FDA-Public Use
  Company Number: GB-PFIZER INC-2016335007

PATIENT
  Age: 90 Year
  Sex: Male

DRUGS (8)
  1. SODIUM CHLORIDE. [Suspect]
     Active Substance: SODIUM CHLORIDE
     Indication: CATHETER MANAGEMENT
     Dosage: 10 ML, UNK
     Route: 065
  2. TAZOCIN [Suspect]
     Active Substance: PIPERACILLIN SODIUM\TAZOBACTAM SODIUM
     Indication: ANTIBIOTIC THERAPY
     Dosage: 4.5 G, UNK
     Route: 042
     Dates: end: 20160502
  3. TAZOCIN [Suspect]
     Active Substance: PIPERACILLIN SODIUM\TAZOBACTAM SODIUM
     Dosage: 4.5 G, UNK
     Route: 042
     Dates: start: 20160502
  4. WATER FOR INJECTIONS [Suspect]
     Active Substance: WATER
     Dosage: 20 ML, UNK
     Route: 042
     Dates: start: 20160502
  5. SODIUM CHLORIDE. [Suspect]
     Active Substance: SODIUM CHLORIDE
     Dosage: 10 ML, UNK
     Route: 065
     Dates: end: 20160502
  6. SODIUM CHLORIDE. [Suspect]
     Active Substance: SODIUM CHLORIDE
     Dosage: 10 ML, UNK
     Route: 065
     Dates: start: 20160502
  7. WATER FOR INJECTIONS [Suspect]
     Active Substance: WATER
     Dosage: 20 ML, UNK
     Route: 042
     Dates: end: 20160502
  8. WATER FOR INJECTIONS [Suspect]
     Active Substance: WATER
     Indication: MEDICATION DILUTION
     Dosage: 20 ML, UNK
     Route: 042

REACTIONS (3)
  - Dyskinesia [Unknown]
  - Pneumoconiosis [Unknown]
  - Depressed mood [Unknown]

NARRATIVE: CASE EVENT DATE: 20160502
